FAERS Safety Report 5733877-8 (Version None)
Quarter: 2008Q2

REPORT INFORMATION
  Report Type: 
  Country: None (occurrence: None)
  Receive Date: 20080509
  Receipt Date: 20080430
  Transmission Date: 20081010
  Serious: Yes (Other)
  Sender: FDA-Public Use
  Company Number: US-ELI_LILLY_AND_COMPANY-US200805000094

PATIENT
  Sex: Female

DRUGS (2)
  1. HUMALOG [Suspect]
     Dates: start: 20050101
  2. METFORMIN HCL [Concomitant]

REACTIONS (3)
  - BLINDNESS [None]
  - BLOOD CHOLESTEROL INCREASED [None]
  - BLOOD GLUCOSE INCREASED [None]
